FAERS Safety Report 20087373 (Version 1)
Quarter: 2021Q4

REPORT INFORMATION
  Report Type: Spontaneous
  Country: IT (occurrence: IT)
  Receive Date: 20211118
  Receipt Date: 20211118
  Transmission Date: 20220303
  Serious: Yes (Life-Threatening, Other)
  Sender: FDA-Public Use
  Company Number: IT-MLMSERVICE-20211104-3205534-1

PATIENT
  Age: 71 Year
  Sex: Female

DRUGS (1)
  1. GEMCITABINE HYDROCHLORIDE [Suspect]
     Active Substance: GEMCITABINE HYDROCHLORIDE
     Indication: Endometrial cancer
     Dosage: UNK, UNKNOWN
     Route: 065

REACTIONS (5)
  - Pulmonary oedema [Recovering/Resolving]
  - Renal injury [Recovering/Resolving]
  - Hypertension [Recovering/Resolving]
  - Thrombotic microangiopathy [Recovering/Resolving]
  - Renal impairment [Recovering/Resolving]
